FAERS Safety Report 9820708 (Version 1)
Quarter: 2014Q1

REPORT INFORMATION
  Report Type: Spontaneous
  Country: US (occurrence: None)
  Receive Date: 20140114
  Receipt Date: 20140114
  Transmission Date: 20141002
  Serious: Yes (Hospitalization, Disabling, Other)
  Sender: FDA-Public Use
  Company Number: None

PATIENT
  Age: 35 Year
  Sex: Female
  Weight: 74.84 kg

DRUGS (4)
  1. CIPRO [Suspect]
     Indication: URINARY TRACT INFECTION
     Dosage: 2 DAYS OFF
  2. CIPRO [Suspect]
     Indication: TENDON DISORDER
     Dosage: 2 DAYS OFF
  3. FLOXIN [Suspect]
     Indication: RESPIRATORY TRACT INFECTION
     Dosage: 3 DAYS OFF
  4. FLOXIN [Suspect]
     Indication: NEUROPATHY PERIPHERAL
     Dosage: 3 DAYS OFF

REACTIONS (17)
  - Tendon pain [None]
  - Upper respiratory tract infection [None]
  - Swelling [None]
  - Weight bearing difficulty [None]
  - Neuropathy peripheral [None]
  - Dysstasia [None]
  - Gait disturbance [None]
  - Balance disorder [None]
  - Suicidal ideation [None]
  - No therapeutic response [None]
  - Visual impairment [None]
  - Fungal infection [None]
  - Vulvovaginal mycotic infection [None]
  - Migraine [None]
  - Fibromyalgia [None]
  - Drug hypersensitivity [None]
  - Vomiting [None]
